FAERS Safety Report 10556599 (Version 3)
Quarter: 2014Q4

REPORT INFORMATION
  Report Type: Spontaneous
  Country: JP (occurrence: JP)
  Receive Date: 20141031
  Receipt Date: 20141117
  Transmission Date: 20150529
  Serious: Yes (Other)
  Sender: FDA-Public Use
  Company Number: JP-BEH-2013035783

PATIENT
  Age: 49 Year
  Sex: Male
  Weight: 62.5 kg

DRUGS (9)
  1. SANGLOPOR I.V. [Suspect]
     Active Substance: HUMAN IMMUNOGLOBULIN G
     Dosage: DOSE: 80 MG/KG. INFUSION RATE: 50 ML/H.
     Route: 042
  2. SANGLOPOR I.V. [Suspect]
     Active Substance: HUMAN IMMUNOGLOBULIN G
     Route: 042
     Dates: start: 20120203, end: 20120203
  3. HYDROCORTISONE. [Concomitant]
     Active Substance: HYDROCORTISONE
     Indication: PREMEDICATION
     Dosage: 100 MG/DOSE
  4. SANGLOPOR I.V. [Suspect]
     Active Substance: HUMAN IMMUNOGLOBULIN G
     Route: 042
     Dates: start: 20120106, end: 20120106
  5. SANGLOPOR I.V. [Suspect]
     Active Substance: HUMAN IMMUNOGLOBULIN G
     Route: 042
     Dates: start: 20111206, end: 20111206
  6. SANGLOPOR I.V. [Suspect]
     Active Substance: HUMAN IMMUNOGLOBULIN G
     Indication: IMMUNOGLOBULIN THERAPY
     Route: 042
     Dates: start: 20111206, end: 20111206
  7. ANTIHISTAMINES [Concomitant]
     Active Substance: ANTIHISTAMINES NOS
     Route: 048
  8. SANGLOPOR I.V. [Suspect]
     Active Substance: HUMAN IMMUNOGLOBULIN G
     Indication: BRUTON^S AGAMMAGLOBULINAEMIA
     Route: 042
     Dates: start: 20120106, end: 20120106
  9. SANGLOPOR I.V. [Suspect]
     Active Substance: HUMAN IMMUNOGLOBULIN G
     Route: 042
     Dates: start: 20120302, end: 20120302

REACTIONS (18)
  - Dysaesthesia [Unknown]
  - Condition aggravated [Unknown]
  - Malaise [Recovered/Resolved]
  - Malaise [Recovered/Resolved]
  - Dizziness [Recovered/Resolved]
  - Visual acuity reduced [Unknown]
  - Muscular weakness [Unknown]
  - Autonomic neuropathy [Unknown]
  - Neck pain [Unknown]
  - Headache [Recovered/Resolved]
  - Sensory disturbance [Unknown]
  - Erythema [Unknown]
  - Pyrexia [Unknown]
  - Tremor [Unknown]
  - Pain in extremity [Recovered/Resolved]
  - Pain in extremity [Recovered/Resolved]
  - Malaise [Recovered/Resolved]
  - Tremor [Unknown]

NARRATIVE: CASE EVENT DATE: 20111206
